FAERS Safety Report 10206877 (Version 2)
Quarter: 2014Q2

REPORT INFORMATION
  Report Type: Report from Study
  Country: DE (occurrence: DE)
  Receive Date: 20140530
  Receipt Date: 20140603
  Transmission Date: 20141212
  Serious: Yes (Hospitalization)
  Sender: FDA-Public Use
  Company Number: PHHO2014DE007804

PATIENT
  Sex: 0

DRUGS (3)
  1. MYFORTIC [Suspect]
     Indication: RENAL TRANSPLANT
     Dosage: 720 MG, BID
     Dates: start: 20080207
  2. SANDIMMUN OPTORAL [Concomitant]
     Indication: RENAL TRANSPLANT
     Dosage: 100 MG, BID
     Dates: start: 20080207
  3. METHYLPREDNISOLONE [Concomitant]
     Dosage: UNK
     Route: 048
     Dates: start: 20080207

REACTIONS (1)
  - Lymphorrhoea [Recovered/Resolved]
